FAERS Safety Report 23827239 (Version 1)
Quarter: 2024Q2

REPORT INFORMATION
  Report Type: Spontaneous
  Country: DE (occurrence: DE)
  Receive Date: 20240507
  Receipt Date: 20240507
  Transmission Date: 20240716
  Serious: Yes (Other)
  Sender: FDA-Public Use
  Company Number: DE-Boehringer Ingelheim GmbH, Germany-2010-DE-06474DE

PATIENT
  Age: 18 Year
  Sex: Female
  Weight: 75 kg

DRUGS (4)
  1. DOXYCYCLINE HYCLATE [Suspect]
     Active Substance: DOXYCYCLINE HYCLATE
     Dosage: 600 MG
     Route: 048
  2. BUTYLSCOPOLAMINE BROMIDE [Suspect]
     Active Substance: BUTYLSCOPOLAMINE BROMIDE
     Dosage: 50 MG (5 TABLETS)
     Route: 048
  3. NAPROXEN [Suspect]
     Active Substance: NAPROXEN
     Dosage: 3000 MG (6 TABLETS)
     Route: 048
  4. DICLOFENAC [Suspect]
     Active Substance: DICLOFENAC
     Dosage: 375 MG (5 TABLETS)
     Route: 048

REACTIONS (1)
  - Suicide attempt [Unknown]
